FAERS Safety Report 5092231-5 (Version None)
Quarter: 2006Q3

REPORT INFORMATION
  Report Type: 
  Country: None (occurrence: None)
  Receive Date: 20060828
  Receipt Date: 20060828
  Transmission Date: 20061208
  Serious: No
  Sender: FDA-Public Use
  Company Number: None

PATIENT
  Sex: Male
  Weight: 79.3795 kg

DRUGS (2)
  1. ROGAINE (FOR MEN) [Suspect]
     Indication: PSORIASIS
     Dosage: 6 DAYS 4 TIMES /DAY
     Dates: start: 20010101
  2. ROGAINE WITH ADDITIONAL TRETINOIN [Concomitant]

REACTIONS (2)
  - HAIR DISORDER [None]
  - SKIN DISORDER [None]
